FAERS Safety Report 5612624-4 (Version None)
Quarter: 2008Q1

REPORT INFORMATION
  Report Type: 
  Country: None (occurrence: None)
  Receive Date: 20080204
  Receipt Date: 20080122
  Transmission Date: 20080703
  Serious: Yes (Hospitalization)
  Sender: FDA-Public Use
  Company Number: B0505989A

PATIENT
  Age: 51 Year
  Sex: Female

DRUGS (7)
  1. ZOPHREN [Suspect]
     Indication: PROPHYLAXIS OF NAUSEA AND VOMITING
     Dosage: 8MG PER DAY
     Route: 042
     Dates: start: 20071022, end: 20071026
  2. CISPLATIN [Suspect]
     Indication: PROPHYLAXIS OF NAUSEA AND VOMITING
     Dosage: 21.2MG PER DAY
     Route: 051
     Dates: start: 20071022, end: 20071026
  3. FLUOROURACIL [Suspect]
     Indication: PROPHYLAXIS OF NAUSEA AND VOMITING
     Route: 051
     Dates: start: 20071022, end: 20071026
  4. PLITICAN [Suspect]
     Indication: DRUG USE FOR UNKNOWN INDICATION
     Dosage: 6UNIT PER DAY
     Route: 042
     Dates: start: 20071022, end: 20071026
  5. SOLU-MEDROL [Suspect]
     Indication: PROPHYLAXIS OF NAUSEA AND VOMITING
     Dosage: 40MG PER DAY
     Route: 042
     Dates: start: 20071022, end: 20071026
  6. LASILIX [Suspect]
     Indication: DRUG USE FOR UNKNOWN INDICATION
     Dosage: 40MG PER DAY
     Route: 042
     Dates: start: 20071024, end: 20071025
  7. EMEND [Concomitant]
     Indication: DRUG USE FOR UNKNOWN INDICATION
     Route: 048

REACTIONS (4)
  - CONVULSION [None]
  - DISORIENTATION [None]
  - HYPOCALCAEMIA [None]
  - PARTIAL SEIZURES [None]
